FAERS Safety Report 15056373 (Version 1)
Quarter: 2018Q2

REPORT INFORMATION
  Report Type: Report from Study
  Country: CN (occurrence: CN)
  Receive Date: 20180622
  Receipt Date: 20180622
  Transmission Date: 20180711
  Serious: Yes (Hospitalization, Other)
  Sender: FDA-Public Use
  Company Number: CN-GILEAD-2018-0346568

PATIENT
  Age: 62 Year
  Sex: Male

DRUGS (1)
  1. ADEFOVIR DIPIVOXIL. [Suspect]
     Active Substance: ADEFOVIR DIPIVOXIL
     Indication: PRODUCT USED FOR UNKNOWN INDICATION
     Route: 065

REACTIONS (6)
  - Hypophosphataemia [Unknown]
  - Osteomalacia [Unknown]
  - Blood alkaline phosphatase increased [Unknown]
  - Bone lesion [Recovered/Resolved]
  - Bone pain [Unknown]
  - Bone density decreased [Unknown]
